FAERS Safety Report 14970029 (Version 2)
Quarter: 2018Q2

REPORT INFORMATION
  Report Type: Spontaneous
  Country: NZ (occurrence: NZ)
  Receive Date: 20180604
  Receipt Date: 20180612
  Transmission Date: 20180711
  Serious: Yes (Other)
  Sender: FDA-Public Use
  Company Number: PHHY2018NZ013009

PATIENT
  Sex: Female

DRUGS (4)
  1. ACETYLSALICYLATE CALCIUM [Concomitant]
     Active Substance: ASPIRIN CALCIUM
     Indication: PRODUCT USED FOR UNKNOWN INDICATION
     Route: 065
  2. VITAMIN D [Concomitant]
     Active Substance: CHOLECALCIFEROL
     Indication: PRODUCT USED FOR UNKNOWN INDICATION
     Route: 065
  3. ACLASTA [Suspect]
     Active Substance: ZOLEDRONIC ACID
     Indication: OSTEOPOROSIS
     Dosage: UNK
     Route: 041
  4. ACLASTA [Suspect]
     Active Substance: ZOLEDRONIC ACID
     Indication: OSTEITIS DEFORMANS

REACTIONS (6)
  - Gait disturbance [Unknown]
  - Impaired healing [Unknown]
  - Lumbar vertebral fracture [Unknown]
  - Condition aggravated [Unknown]
  - Breast mass [Unknown]
  - Back pain [Unknown]
